FAERS Safety Report 19104003 (Version 1)
Quarter: 2021Q2

REPORT INFORMATION
  Report Type: Spontaneous
  Country: US (occurrence: US)
  Receive Date: 20210407
  Receipt Date: 20210407
  Transmission Date: 20210717
  Serious: Yes (Other)
  Sender: FDA-Public Use
  Company Number: US-ALVOGEN-2021-ALVOGEN-116842

PATIENT
  Age: 57 Year

DRUGS (3)
  1. CISPLATIN. [Suspect]
     Active Substance: CISPLATIN
     Indication: HYPERTHERMIC CHEMOTHERAPY
  2. DOXORUBICIN [Suspect]
     Active Substance: DOXORUBICIN
     Indication: HYPERTHERMIC CHEMOTHERAPY
  3. IFOSFAMIDE. [Suspect]
     Active Substance: IFOSFAMIDE
     Indication: HYPERTHERMIC CHEMOTHERAPY

REACTIONS (4)
  - Portal vein thrombosis [Unknown]
  - Pneumonia [Unknown]
  - Deep vein thrombosis [Unknown]
  - Haemoperitoneum [Unknown]
